FAERS Safety Report 12790941 (Version 2)
Quarter: 2018Q1

REPORT INFORMATION
  Report Type: Spontaneous
  Country: US (occurrence: US)
  Receive Date: 20160929
  Receipt Date: 20180126
  Transmission Date: 20180508
  Serious: No
  Sender: FDA-Public Use
  Company Number: US-ASTRAZENECA-2016SF03236

PATIENT
  Sex: Female

DRUGS (2)
  1. NEXIUM 24HR [Suspect]
     Active Substance: ESOMEPRAZOLE MAGNESIUM
     Indication: GASTROOESOPHAGEAL REFLUX DISEASE
     Dosage: ONE CAPSULE IN MORNING AND ONE IN EVENING
     Route: 048
     Dates: start: 201601
  2. NEXIUM [Suspect]
     Active Substance: ESOMEPRAZOLE MAGNESIUM
     Dosage: UNKNOWN DOSE AND FREQUENCY
     Route: 048

REACTIONS (5)
  - Inappropriate schedule of drug administration [Unknown]
  - Vomiting [Unknown]
  - Malaise [Unknown]
  - Chest pain [Unknown]
  - Drug ineffective [Unknown]
